FAERS Safety Report 5460684-6 (Version None)
Quarter: 2007Q3

REPORT INFORMATION
  Report Type: 
  Country: None (occurrence: None)
  Receive Date: 20070918
  Receipt Date: 20070904
  Transmission Date: 20080115
  Serious: Yes (Other)
  Sender: FDA-Public Use
  Company Number: POMP-11182

PATIENT
  Age: 1 Year
  Sex: Male
  Weight: 9.79 kg

DRUGS (4)
  1. MYOZYME [Suspect]
     Indication: GLYCOGEN STORAGE DISEASE TYPE II
     Dosage: 20 MG/KG Q2WKS IV
     Route: 042
     Dates: start: 20061108
  2. ALPHA-GLUCOSIDASE (HUMAN, RECOMBINANT, CHO CELLS, GENZYME). MFR: GENZY [Concomitant]
     Indication: GLYCOGEN STORAGE DISEASE TYPE II
     Dosage: 20 MG/KG Q2WKS IV
     Route: 042
     Dates: start: 20051222, end: 20060101
  3. PROPRANOLOL [Concomitant]
  4. CAPTOPRIL [Concomitant]

REACTIONS (12)
  - ATELECTASIS [None]
  - BODY TEMPERATURE INCREASED [None]
  - BRONCHOSPASM [None]
  - CYANOSIS [None]
  - HYPERHIDROSIS [None]
  - HYPERTROPHIC CARDIOMYOPATHY [None]
  - PALLOR [None]
  - PALMAR ERYTHEMA [None]
  - PERIPHERAL COLDNESS [None]
  - RASH [None]
  - TACHYCARDIA [None]
  - TREMOR [None]
